FAERS Safety Report 4343480-2 (Version None)
Quarter: 2004Q2

REPORT INFORMATION
  Report Type: 
  Country: None (occurrence: None)
  Receive Date: 20040419
  Receipt Date: 20040402
  Transmission Date: 20050107
  Serious: Yes (Death)
  Sender: FDA-Public Use
  Company Number: A-US2004-05433

PATIENT
  Age: 78 Year
  Sex: Female

DRUGS (13)
  1. TRACLEER [Suspect]
     Dosage: SEE IMAGE
     Route: 048
     Dates: start: 20030730, end: 20030827
  2. TRACLEER [Suspect]
     Dosage: SEE IMAGE
     Route: 048
     Dates: start: 20030828, end: 20040307
  3. HYDROCORTISONE [Concomitant]
  4. TYLENOL W/ CODEINE NO. 3 [Concomitant]
  5. LANOXIN [Concomitant]
  6. COUMADIN [Concomitant]
  7. ZANTAC [Concomitant]
  8. ZAROXOLYN [Concomitant]
  9. CARDIZEM [Concomitant]
  10. SYNTHROID [Concomitant]
  11. BIOMET (CIMETIDINE) [Concomitant]
  12. COZAAR [Concomitant]
  13. KLOR-CON [Concomitant]

REACTIONS (1)
  - DEATH [None]
